FAERS Safety Report 18387327 (Version 7)
Quarter: 2021Q3

REPORT INFORMATION
  Report Type: Spontaneous
  Country: US (occurrence: US)
  Receive Date: 20201015
  Receipt Date: 20210709
  Transmission Date: 20211014
  Serious: Yes (Other)
  Sender: FDA-Public Use
  Company Number: US-PFIZER INC-2020397057

PATIENT
  Age: 78 Year
  Sex: Male
  Weight: 100.68 kg

DRUGS (7)
  1. TOVIAZ [Suspect]
     Active Substance: FESOTERODINE FUMARATE
     Dosage: 8 MG, 1X/DAY (ONCE IN THE EVENING)
     Route: 048
     Dates: start: 201806
  2. TOVIAZ [Suspect]
     Active Substance: FESOTERODINE FUMARATE
     Dosage: 8 MG, 1X/DAY (AT NIGHT)
     Dates: start: 201809
  3. OXYBUTIN [Concomitant]
     Active Substance: OXYBUTYNIN
     Dosage: UNK, AS NEEDED (5 TO 10 MG) (HE USED OXYBUTIN AND FLOMAX TOGETHER AND WENT ON TOVIAZ)
     Route: 048
  4. TOVIAZ [Suspect]
     Active Substance: FESOTERODINE FUMARATE
     Indication: MICTURITION URGENCY
     Dosage: 4 MG
  5. FLOMAX [Concomitant]
     Active Substance: TAMSULOSIN HYDROCHLORIDE
     Indication: MICTURITION URGENCY
     Dosage: 0.4 MG, 1X/DAY (CALLER TOOK FLOMAX UP UNTIL HE STARTED TAKING OXYBUTIN)
     Dates: end: 201806
  6. OXYBUTIN [Concomitant]
     Active Substance: OXYBUTYNIN
     Indication: MICTURITION URGENCY
     Dosage: 5 MG, 2X/DAY
  7. MYRBETRIQ [Concomitant]
     Active Substance: MIRABEGRON
     Dosage: UNK (WAS ONLY ON FOR A SHORT TIME)

REACTIONS (6)
  - Therapeutic product effect incomplete [Unknown]
  - Hiatus hernia [Unknown]
  - Dysuria [Unknown]
  - Micturition urgency [Unknown]
  - Condition aggravated [Unknown]
  - Nocturia [Unknown]

NARRATIVE: CASE EVENT DATE: 201809
